FAERS Safety Report 16529044 (Version 1)
Quarter: 2019Q3

REPORT INFORMATION
  Report Type: Spontaneous
  Country: US (occurrence: US)
  Receive Date: 20190703
  Receipt Date: 20190703
  Transmission Date: 20191004
  Serious: No
  Sender: FDA-Public Use
  Company Number: US-ASCEND THERAPEUTICS-2070331

PATIENT
  Age: 56 Year
  Sex: Female

DRUGS (2)
  1. ESTROGEL [Suspect]
     Active Substance: ESTRADIOL
     Indication: HOT FLUSH
     Route: 062
     Dates: start: 201811, end: 20190621
  2. IBUPROFEN. [Concomitant]
     Active Substance: IBUPROFEN

REACTIONS (5)
  - Irritability [Unknown]
  - Insomnia [Unknown]
  - Product availability issue [None]
  - Night sweats [Unknown]
  - Product dose omission [None]
